FAERS Safety Report 24716688 (Version 1)
Quarter: 2024Q4

REPORT INFORMATION
  Report Type: Spontaneous
  Country: US (occurrence: None)
  Receive Date: 20241209
  Receipt Date: 20241209
  Transmission Date: 20250115
  Serious: Yes (Hospitalization)
  Sender: Public
  Company Number: None

PATIENT
  Age: 74 Year
  Sex: Female
  Weight: 56.7 kg

DRUGS (12)
  1. SODIUM SULFATE, POTASSIUM SULFATE AND MAGNESIUM SULFATE [Suspect]
     Active Substance: MAGNESIUM SULFATE, UNSPECIFIED\POTASSIUM SULFATE\SODIUM SULFATE
     Indication: Bowel preparation
     Dosage: OUNCE ONLY ...ONCE TAKEN BY MOUTH
     Route: 048
     Dates: start: 20241021, end: 20241021
  2. VALSARTAN [Concomitant]
     Active Substance: VALSARTAN
  3. PLAVIX [Concomitant]
     Active Substance: CLOPIDOGREL BISULFATE
  4. NEXIUM [Concomitant]
     Active Substance: ESOMEPRAZOLE MAGNESIUM
  5. FAMOTIDINE [Concomitant]
     Active Substance: FAMOTIDINE
  6. IRON [Concomitant]
     Active Substance: IRON
  7. B12 [Concomitant]
  8. VITAMINS [Concomitant]
     Active Substance: VITAMINS
  9. VITAMIN C [Concomitant]
     Active Substance: ASCORBIC ACID
  10. HAIR GROWTH [Concomitant]
     Active Substance: BLACK PEPPER\COLLAGEN, SOLUBLE, FISH SKIN\EQUISETUM ARVENSE TOP\POLYGONUM CUSPIDATUM ROOT\SAW PALMET
  11. NATURE^S BOUNTY [Concomitant]
  12. VITAMIN D3 [Concomitant]
     Active Substance: CHOLECALCIFEROL

REACTIONS (9)
  - Gait disturbance [None]
  - Balance disorder [None]
  - Headache [None]
  - Swelling [None]
  - Back pain [None]
  - Myalgia [None]
  - Tremor [None]
  - Seizure [None]
  - Blood sodium decreased [None]

NARRATIVE: CASE EVENT DATE: 20241021
